FAERS Safety Report 10277670 (Version 1)
Quarter: 2014Q3

REPORT INFORMATION
  Report Type: Spontaneous
  Country: ES (occurrence: ES)
  Receive Date: 20140704
  Receipt Date: 20140704
  Transmission Date: 20150326
  Serious: Yes (Other)
  Sender: FDA-Public Use
  Company Number: ES-ROCHE-1429078

PATIENT
  Age: 31 Year
  Sex: Female
  Weight: 78.9 kg

DRUGS (19)
  1. SODIUM BICARBONATE. [Concomitant]
     Active Substance: SODIUM BICARBONATE
     Route: 065
  2. ROYEN [Concomitant]
     Route: 065
  3. ZEMPLAR [Concomitant]
     Active Substance: PARICALCITOL
     Route: 065
  4. RIBAVIRIN. [Suspect]
     Active Substance: RIBAVIRIN
     Indication: HEPATITIS C
     Route: 048
     Dates: start: 20140117, end: 20140519
  5. DOSTINEX [Concomitant]
     Active Substance: CABERGOLINE
     Route: 065
  6. RIBAVIRIN. [Suspect]
     Active Substance: RIBAVIRIN
     Route: 048
     Dates: start: 20140519
  7. DOSTINEX [Concomitant]
     Active Substance: CABERGOLINE
     Route: 065
  8. ZEMPLAR [Concomitant]
     Active Substance: PARICALCITOL
     Route: 065
  9. BALZAK PLUS [Concomitant]
     Active Substance: AMLODIPINE BESYLATE\HYDROCHLOROTHIAZIDE\OLMESARTAN MEDOXOMIL
     Dosage: 20/5/12.5 MG
     Route: 065
  10. PEGASYS [Suspect]
     Active Substance: PEGINTERFERON ALFA-2A
     Indication: HEPATITIS C
     Route: 058
     Dates: start: 20140117
  11. ATORVASTATIN [Concomitant]
     Active Substance: ATORVASTATIN
     Route: 065
     Dates: end: 20140214
  12. POTASION [Concomitant]
     Route: 065
  13. SAFLUTAN [Concomitant]
     Active Substance: TAFLUPROST
     Route: 065
  14. ALLOPURINOL. [Concomitant]
     Active Substance: ALLOPURINOL
     Route: 065
  15. AMLODIPIN [Concomitant]
     Active Substance: AMLODIPINE BESYLATE
     Route: 065
  16. ATARAX [Concomitant]
     Active Substance: HYDROXYZINE\HYDROXYZINE HYDROCHLORIDE
     Route: 065
  17. VICTRELIS [Suspect]
     Active Substance: BOCEPREVIR
     Indication: HEPATITIS C
     Route: 048
     Dates: start: 20140217
  18. EUTIROX [Concomitant]
     Active Substance: LEVOTHYROXINE SODIUM
     Route: 065
  19. LISINOPRIL. [Concomitant]
     Active Substance: LISINOPRIL
     Route: 065

REACTIONS (13)
  - Rhinorrhoea [Unknown]
  - Cough [Unknown]
  - Nausea [Unknown]
  - Vomiting [Unknown]
  - Hepatitis C [Unknown]
  - Pain [Unknown]
  - Oropharyngeal pain [Unknown]
  - Depression [Unknown]
  - Headache [Unknown]
  - Haemoglobin decreased [Unknown]
  - Transfusion [Unknown]
  - Fatigue [Unknown]
  - Pyrexia [Unknown]
